FAERS Safety Report 7686557-6 (Version None)
Quarter: 2011Q3

REPORT INFORMATION
  Report Type: 
  Country: None (occurrence: None)
  Receive Date: 20110816
  Receipt Date: 20110809
  Transmission Date: 20111222
  Serious: Yes (Other)
  Sender: FDA-Public Use
  Company Number: GB-MERCK-1101GBR00113B1

PATIENT

DRUGS (1)
  1. ZOCOR [Suspect]
     Route: 064

REACTIONS (1)
  - FOETAL DISTRESS SYNDROME [None]
